FAERS Safety Report 17017418 (Version 2)
Quarter: 2019Q4

REPORT INFORMATION
  Report Type: Spontaneous
  Country: CN (occurrence: CN)
  Receive Date: 20191111
  Receipt Date: 20191114
  Transmission Date: 20200122
  Serious: Yes (Death)
  Sender: FDA-Public Use
  Company Number: CN-PFIZER INC-2019475491

PATIENT
  Age: 68 Year
  Sex: Male

DRUGS (8)
  1. VORICONAZOLE. [Suspect]
     Active Substance: VORICONAZOLE
     Dosage: 200 MG, 2X/DAY(COMBINED THERAPY)
     Dates: start: 20171219
  2. MEROPENEM. [Concomitant]
     Active Substance: MEROPENEM
     Dosage: 2 G, 3X/DAY
     Dates: start: 20171219
  3. VORICONAZOLE. [Suspect]
     Active Substance: VORICONAZOLE
     Indication: BRONCHOPULMONARY ASPERGILLOSIS
     Dosage: 200 MG, 2X/DAY (EMPIRICALLY PRESCRIBED)
     Route: 048
     Dates: start: 20171020
  4. VORICONAZOLE. [Suspect]
     Active Substance: VORICONAZOLE
     Indication: EVIDENCE BASED TREATMENT
     Dosage: REDUCED THE ORAL DOSE OF VORICONAZOLE
     Route: 048
     Dates: start: 20171124
  5. LINEZOLID. [Concomitant]
     Active Substance: LINEZOLID
     Dosage: 0.6 G, 2X/DAY
     Dates: start: 20171219
  6. BORTEZOMIB. [Concomitant]
     Active Substance: BORTEZOMIB
     Dosage: 1.1 MG/M2/WEEK
     Dates: start: 20171124
  7. CYCLOPHOSPHAMIDE. [Concomitant]
     Active Substance: CYCLOPHOSPHAMIDE
     Dosage: 300 MG, WEEKLY (300 MG; QW)
     Dates: start: 20171124
  8. DEXAMETHASONE. [Concomitant]
     Active Substance: DEXAMETHASONE
     Dosage: 20 MG, WEEKLY (20 MG; QW)
     Dates: start: 20171124

REACTIONS (3)
  - Pathogen resistance [Fatal]
  - Mucormycosis [Fatal]
  - Treatment noncompliance [Unknown]

NARRATIVE: CASE EVENT DATE: 2017
